FAERS Safety Report 16854309 (Version 3)
Quarter: 2020Q4

REPORT INFORMATION
  Report Type: Spontaneous
  Country: US (occurrence: US)
  Receive Date: 20190926
  Receipt Date: 20201210
  Transmission Date: 20210113
  Serious: Yes (Hospitalization, Other)
  Sender: FDA-Public Use
  Company Number: US-GILEAD-2019-0429229

PATIENT
  Age: 51 Year
  Sex: Male
  Weight: 95.24 kg

DRUGS (40)
  1. BIKTARVY [Concomitant]
     Active Substance: BICTEGRAVIR SODIUM\EMTRICITABINE\TENOFOVIR ALAFENAMIDE FUMARATE
  2. ISENTRESS [Concomitant]
     Active Substance: RALTEGRAVIR POTASSIUM
  3. ACETAMINOPHEN. [Concomitant]
     Active Substance: ACETAMINOPHEN
  4. BUPROPION. [Concomitant]
     Active Substance: BUPROPION
  5. CHLORHEXIDINE [Concomitant]
     Active Substance: CHLORHEXIDINE
  6. CLONAZEPAM. [Concomitant]
     Active Substance: CLONAZEPAM
  7. DEXTROSE. [Concomitant]
     Active Substance: DEXTROSE
  8. DULOXETINE HCL [Concomitant]
     Active Substance: DULOXETINE HYDROCHLORIDE
  9. ASPRIN [Concomitant]
     Active Substance: ASPIRIN
  10. CLINDAMYCIN. [Concomitant]
     Active Substance: CLINDAMYCIN
  11. ZOLPIDEM TARTRATE. [Concomitant]
     Active Substance: ZOLPIDEM TARTRATE
  12. EPIVIR [Concomitant]
     Active Substance: LAMIVUDINE
  13. CLONIDINE. [Concomitant]
     Active Substance: CLONIDINE
  14. DIPHENHYDRAMINE. [Concomitant]
     Active Substance: DIPHENHYDRAMINE
  15. ZESTRIL [Concomitant]
     Active Substance: LISINOPRIL
  16. LYRICA [Concomitant]
     Active Substance: PREGABALIN
  17. NITROSTAT [Concomitant]
     Active Substance: NITROGLYCERIN
  18. ONDANSETRON [Concomitant]
     Active Substance: ONDANSETRON
  19. VALACYCLOVIR HCL [Concomitant]
     Active Substance: VALACYCLOVIR HYDROCHLORIDE
  20. IBUPROFEN. [Concomitant]
     Active Substance: IBUPROFEN
  21. ZIAGEN [Concomitant]
     Active Substance: ABACAVIR SULFATE
  22. VENTOLIN HFA [Concomitant]
     Active Substance: ALBUTEROL SULFATE
  23. TIVICAY [Concomitant]
     Active Substance: DOLUTEGRAVIR SODIUM
  24. ABACAVIR. [Concomitant]
     Active Substance: ABACAVIR
  25. PROVENTIL [Concomitant]
     Active Substance: ALBUTEROL
  26. PRINIVIL [Concomitant]
     Active Substance: LISINOPRIL
  27. LISINOPRIL. [Concomitant]
     Active Substance: LISINOPRIL
  28. ABILIFY [Concomitant]
     Active Substance: ARIPIPRAZOLE
  29. EPINEPHRINE. [Concomitant]
     Active Substance: EPINEPHRINE
  30. MELOXICAM. [Concomitant]
     Active Substance: MELOXICAM
  31. SIMVASTATIN. [Concomitant]
     Active Substance: SIMVASTATIN
  32. ATRIPLA [Suspect]
     Active Substance: EFAVIRENZ\EMTRICITABINE\TENOFOVIR DISOPROXIL FUMARATE
     Indication: HIV INFECTION
     Dosage: UNK
     Route: 048
     Dates: start: 2006, end: 20150615
  33. DOCUSATE [Concomitant]
     Active Substance: DOCUSATE
  34. LABETALOL [Concomitant]
     Active Substance: LABETALOL\LABETALOL HYDROCHLORIDE
  35. PROAIR HFA [Concomitant]
     Active Substance: ALBUTEROL SULFATE
  36. ZERIT [Concomitant]
     Active Substance: STAVUDINE
  37. DILANTIN [Concomitant]
     Active Substance: PHENYTOIN
  38. VALIUM [Concomitant]
     Active Substance: DIAZEPAM
  39. VENOFER [Concomitant]
     Active Substance: IRON SUCROSE
  40. SHINGRIX [Concomitant]
     Active Substance: RECOMBINANT VARICELLA ZOSTER VIRUS (VZV) GLYCOPROTEIN E

REACTIONS (14)
  - Unemployment [Not Recovered/Not Resolved]
  - Renal failure [Recovered/Resolved]
  - End stage renal disease [Not Recovered/Not Resolved]
  - Loss of personal independence in daily activities [Not Recovered/Not Resolved]
  - Mobility decreased [Not Recovered/Not Resolved]
  - Pain [Not Recovered/Not Resolved]
  - Fear [Not Recovered/Not Resolved]
  - Anhedonia [Not Recovered/Not Resolved]
  - Anxiety [Not Recovered/Not Resolved]
  - Fatigue [Not Recovered/Not Resolved]
  - Quality of life decreased [Not Recovered/Not Resolved]
  - Depression [Not Recovered/Not Resolved]
  - Emotional distress [Not Recovered/Not Resolved]
  - Migraine [Not Recovered/Not Resolved]

NARRATIVE: CASE EVENT DATE: 2010
